FAERS Safety Report 5779896-7 (Version None)
Quarter: 2008Q2

REPORT INFORMATION
  Report Type: 
  Country: None (occurrence: None)
  Receive Date: 20080620
  Receipt Date: 20080516
  Transmission Date: 20081010
  Serious: No
  Sender: FDA-Public Use
  Company Number: US-BAYER-200823515NA

PATIENT
  Age: 38 Year
  Sex: Female

DRUGS (2)
  1. YAZ [Suspect]
     Indication: CONTRACEPTION
     Route: 048
     Dates: start: 20080101
  2. CLARINEX [Concomitant]
     Indication: SEASONAL ALLERGY

REACTIONS (2)
  - PRURITUS [None]
  - RASH PAPULAR [None]
